FAERS Safety Report 5804309-6 (Version None)
Quarter: 2008Q3

REPORT INFORMATION
  Report Type: 
  Country: None (occurrence: None)
  Receive Date: 20080709
  Receipt Date: 20080708
  Transmission Date: 20090109
  Serious: Yes (Hospitalization)
  Sender: FDA-Public Use
  Company Number: FR-WYE-G01832108

PATIENT
  Age: 8 Year
  Sex: Female

DRUGS (1)
  1. ADVIL [Suspect]
     Indication: ABDOMINAL PAIN
     Dosage: UNKNOWN
     Route: 048
     Dates: start: 20000101, end: 20000101

REACTIONS (1)
  - PERITONITIS [None]
